FAERS Safety Report 10071203 (Version 1)
Quarter: 2014Q2

REPORT INFORMATION
  Report Type: Spontaneous
  Country: US (occurrence: US)
  Receive Date: 20140410
  Receipt Date: 20140410
  Transmission Date: 20141212
  Serious: No
  Sender: FDA-Public Use
  Company Number: US-GALDERMA-US14000374

PATIENT
  Sex: Male

DRUGS (2)
  1. DIFFERIN (ADAPALENE) LOTION 0.1% [Suspect]
     Route: 061
  2. EPIDUO (ADAPALENE, BENZOYL PEROXIDE) GEL 0.1% / 2.5% [Suspect]
     Route: 061

REACTIONS (2)
  - Skin burning sensation [Unknown]
  - Skin exfoliation [Unknown]
